FAERS Safety Report 4381210-9 (Version None)
Quarter: 2004Q2

REPORT INFORMATION
  Report Type: 
  Country: None (occurrence: None)
  Receive Date: 20040614
  Receipt Date: 20040603
  Transmission Date: 20050107
  Serious: Yes (Other)
  Sender: FDA-Public Use
  Company Number: ENT 2004-0106

PATIENT
  Age: 72 Year
  Sex: Male

DRUGS (2)
  1. COMTAN [Suspect]
     Indication: PARKINSON'S DISEASE
     Dosage: 1 TABLET
     Route: 048
  2. MIRAPEX [Concomitant]

REACTIONS (4)
  - DRY MOUTH [None]
  - DYSPNOEA [None]
  - HEMIPARESIS [None]
  - SOMNOLENCE [None]
